FAERS Safety Report 15288173 (Version 1)
Quarter: 2018Q3

REPORT INFORMATION
  Report Type: Spontaneous
  Country: US (occurrence: US)
  Receive Date: 20180802
  Receipt Date: 20180802
  Transmission Date: 20181010
  Serious: No
  Sender: FDA-Public Use
  Company Number: None

PATIENT
  Age: 47 Year
  Sex: Female

DRUGS (1)
  1. ENBREL [Suspect]
     Active Substance: ETANERCEPT
     Dates: start: 20180710, end: 20180724

REACTIONS (5)
  - Nausea [None]
  - Burning sensation [None]
  - Diarrhoea [None]
  - Dizziness [None]
  - Erythema [None]

NARRATIVE: CASE EVENT DATE: 20180724
